FAERS Safety Report 4330434-5 (Version None)
Quarter: 2004Q1

REPORT INFORMATION
  Report Type: 
  Country: None (occurrence: None)
  Receive Date: 20040330
  Receipt Date: 20040316
  Transmission Date: 20041129
  Serious: Yes (Death, Life-Threatening)
  Sender: FDA-Public Use
  Company Number: GB-JNJFOC-20040304160

PATIENT
  Age: 57 Year
  Sex: Female

DRUGS (11)
  1. REMICADE [Suspect]
     Indication: RHEUMATOID ARTHRITIS
     Dosage: 400 MG, INTRAVENOUS
     Route: 042
     Dates: start: 20021010, end: 20030501
  2. PREDNISOLONE [Concomitant]
  3. ACECLOFENAC (ACECLOFENAC) [Concomitant]
  4. LOSEC (OMEPRAZOLE) [Concomitant]
  5. AMIODARONE HCL [Concomitant]
  6. FOSAMAX [Concomitant]
  7. METHOTREXATE [Concomitant]
  8. FOLIC ACID [Concomitant]
  9. ASPIRIN [Concomitant]
  10. LISINOPRIL [Concomitant]
  11. ATENOLOL [Concomitant]

REACTIONS (2)
  - BRONCHOPNEUMONIA [None]
  - LEFT VENTRICULAR FAILURE [None]
